FAERS Safety Report 8344726-6 (Version None)
Quarter: 2012Q2

REPORT INFORMATION
  Report Type: 
  Country: None (occurrence: None)
  Receive Date: 20120508
  Receipt Date: 20120430
  Transmission Date: 20120825
  Serious: Yes (Hospitalization)
  Sender: FDA-Public Use
  Company Number: US-ROCHE-1064673

PATIENT
  Sex: Female

DRUGS (2)
  1. ZELBORAF [Suspect]
     Indication: PRODUCT USED FOR UNKNOWN INDICATION
     Route: 048
  2. ZELBORAF [Suspect]
     Route: 048

REACTIONS (9)
  - NAUSEA [None]
  - RASH MORBILLIFORM [None]
  - CYST [None]
  - DERMATITIS ACNEIFORM [None]
  - VOMITING [None]
  - DIARRHOEA [None]
  - HYPOMAGNESAEMIA [None]
  - HYPONATRAEMIA [None]
  - HYPOKALAEMIA [None]
